FAERS Safety Report 5903981-X (Version None)
Quarter: 2008Q3

REPORT INFORMATION
  Report Type: 
  Country: None (occurrence: None)
  Receive Date: 20080930
  Receipt Date: 20080925
  Transmission Date: 20090109
  Serious: Yes (Other)
  Sender: FDA-Public Use
  Company Number: GB-MERCK-0809GBR00120

PATIENT
  Age: 80 Year
  Sex: Female

DRUGS (9)
  1. FOSAMAX [Suspect]
     Indication: OSTEOPOROSIS
     Route: 048
  2. AMOXICILLIN [Concomitant]
     Route: 065
  3. FOLIC ACID [Concomitant]
     Route: 048
  4. INDOMETHACIN [Concomitant]
     Route: 048
  5. INFLIXIMAB [Concomitant]
     Route: 065
  6. METHOTREXATE [Concomitant]
     Route: 065
  7. ACETAMINOPHEN [Concomitant]
     Route: 065
  8. PREDNISOLONE [Concomitant]
     Route: 065
  9. WARFARIN [Concomitant]
     Route: 048

REACTIONS (1)
  - IMPAIRED HEALING [None]
